FAERS Safety Report 4985714-7 (Version None)
Quarter: 2006Q2

REPORT INFORMATION
  Report Type: 
  Country: None (occurrence: None)
  Receive Date: 20060428
  Receipt Date: 20050411
  Transmission Date: 20061013
  Serious: No
  Sender: FDA-Public Use
  Company Number: US-GLAXOSMITHKLINE-A0553577A

PATIENT
  Sex: Female

DRUGS (3)
  1. ZOFRAN [Suspect]
     Indication: PROPHYLAXIS OF NAUSEA AND VOMITING
     Dosage: 8MG SIX TIMES PER DAY
     Route: 048
  2. PAIN MEDICATIONS [Concomitant]
  3. CHEMOTHERAPY [Concomitant]
     Route: 065

REACTIONS (1)
  - DRUG INEFFECTIVE [None]
